FAERS Safety Report 15643581 (Version 4)
Quarter: 2019Q2

REPORT INFORMATION
  Report Type: Spontaneous
  Country: US (occurrence: US)
  Receive Date: 20181121
  Receipt Date: 20190626
  Transmission Date: 20190711
  Serious: Yes (Other)
  Sender: FDA-Public Use
  Company Number: US-PFIZER INC-2018469780

PATIENT
  Age: 84 Year
  Sex: Female
  Weight: 70 kg

DRUGS (3)
  1. XALATAN [Suspect]
     Active Substance: LATANOPROST
     Dosage: 1 GTT, 1X/DAY (1 DROP IN THE LEFT EYE, EVERY NIGHT)
     Dates: start: 20151001
  2. VITAMIN B12 [Concomitant]
     Active Substance: CYANOCOBALAMIN
     Dosage: 1000 MG, 1X/DAY (TAKEN IN THE MIDDLE OF NIGHT WHEN SHE WAKES UP)
     Route: 060
  3. LISINOPRIL. [Concomitant]
     Active Substance: LISINOPRIL
     Indication: HYPERTENSION
     Dosage: 10 MG, 1X/DAY
     Route: 048

REACTIONS (7)
  - Fall [Unknown]
  - Arthralgia [Unknown]
  - Wrist fracture [Unknown]
  - Product quality issue [Unknown]
  - Musculoskeletal pain [Unknown]
  - Product packaging difficult to open [Unknown]
  - Product dose omission [Unknown]

NARRATIVE: CASE EVENT DATE: 201710
